FAERS Safety Report 7417949-8 (Version None)
Quarter: 2011Q2

REPORT INFORMATION
  Report Type: 
  Country: None (occurrence: None)
  Receive Date: 20110415
  Receipt Date: 20110412
  Transmission Date: 20111010
  Serious: Yes (Death)
  Sender: FDA-Public Use
  Company Number: CO-PFIZER INC-2011081397

PATIENT
  Age: 63 Year
  Sex: Female

DRUGS (4)
  1. FUROSEMID [Concomitant]
     Dosage: 40 MG, 1X/DAY
     Route: 048
  2. LIPITOR [Suspect]
     Indication: DYSLIPIDAEMIA
     Dosage: 20 MG, 1X/DAY
     Route: 048
     Dates: start: 20040901
  3. OLMETEC [Suspect]
     Indication: HYPERTENSION
     Dosage: [OLMESARTAN 20 MG / HYDROCHLOROTHIAZIDE 12.5 MG], DAILY
     Route: 048
     Dates: start: 20040901
  4. METFORMIN [Concomitant]
     Dosage: 850 MG, 1X/DAY
     Route: 048

REACTIONS (1)
  - DEATH [None]
